FAERS Safety Report 21348475 (Version 2)
Quarter: 2022Q4

REPORT INFORMATION
  Report Type: Spontaneous
  Country: US (occurrence: US)
  Receive Date: 20220919
  Receipt Date: 20221020
  Transmission Date: 20230113
  Serious: Yes (Hospitalization, Other)
  Sender: FDA-Public Use
  Company Number: US-BRISTOL-MYERS SQUIBB COMPANY-2022-105584

PATIENT
  Age: 79 Year
  Sex: Female
  Weight: 68.27 kg

DRUGS (2)
  1. REVLIMID [Suspect]
     Active Substance: LENALIDOMIDE
     Indication: Plasma cell myeloma
     Dosage: FREQUENCY: DAILY X 21 DAYS, EVERY 28 DAYS
     Route: 048
     Dates: start: 20220620
  2. REVLIMID [Suspect]
     Active Substance: LENALIDOMIDE
     Dosage: FREQUENCY: DAILY X 21 DAYS, EVERY 28 DAYS
     Route: 048
     Dates: start: 20220620

REACTIONS (6)
  - Nausea [Not Recovered/Not Resolved]
  - Vomiting [Unknown]
  - Decreased appetite [Unknown]
  - Taste disorder [Unknown]
  - Diarrhoea [Not Recovered/Not Resolved]
  - Full blood count decreased [Not Recovered/Not Resolved]
